FAERS Safety Report 4738956-X (Version None)
Quarter: 2005Q3

REPORT INFORMATION
  Report Type: 
  Country: None (occurrence: None)
  Receive Date: 20050801
  Receipt Date: 20050331
  Transmission Date: 20060218
  Serious: Yes (Other)
  Sender: FDA-Public Use
  Company Number: 212995

PATIENT
  Age: 55 Year
  Sex: Female
  Weight: 83.4 kg

DRUGS (4)
  1. HERCEPTIN [Suspect]
     Indication: BREAST CANCER METASTATIC
     Dosage: 340 MG, SINGLE, INTRAVENOUS;  170 MG, 1/WEEK, INTRAVENOUS
     Route: 042
     Dates: start: 20050223
  2. HERCEPTIN [Suspect]
     Indication: BREAST CANCER METASTATIC
     Dosage: 340 MG, SINGLE, INTRAVENOUS;  170 MG, 1/WEEK, INTRAVENOUS
     Route: 042
     Dates: start: 20050223
  3. TAXOTERE [Concomitant]
  4. CARBOPLATIN [Concomitant]

REACTIONS (3)
  - LIVER FUNCTION TEST ABNORMAL [None]
  - NAUSEA [None]
  - VOMITING [None]
